FAERS Safety Report 9900139 (Version 3)
Quarter: 2014Q2

REPORT INFORMATION
  Report Type: Spontaneous
  Country: US (occurrence: US)
  Receive Date: 20140214
  Receipt Date: 20140611
  Transmission Date: 20141212
  Serious: Yes (Other)
  Sender: FDA-Public Use
  Company Number: US-RB-061723-13

PATIENT
  Age: 33 Year
  Sex: Female

DRUGS (5)
  1. SUBOXONE FILM [Suspect]
     Indication: DRUG DEPENDENCE
     Dosage: SUBOXONE FILM
     Route: 060
     Dates: start: 2011, end: 201312
  2. METHADONE [Suspect]
     Indication: DRUG DEPENDENCE
     Route: 048
     Dates: start: 201312
  3. SUBUTEX [Suspect]
     Indication: PRODUCT USED FOR UNKNOWN INDICATION
     Dosage: DOSING DETAILS UNKNOWN
     Route: 065
  4. PRENATAL VITAMINS [Concomitant]
     Indication: NUTRITIONAL SUPPLEMENTATION
     Dosage: TAKING 1 TABLET DAILY, UNKNOWN UNIT STRENGTH
     Route: 065
     Dates: start: 201308
  5. ZANTAC [Concomitant]
     Indication: DYSPEPSIA
     Dosage: UNKNOWN DOSING DETAILS
     Route: 065
     Dates: start: 201308

REACTIONS (3)
  - Maternal exposure during pregnancy [Recovered/Resolved]
  - Uterine contractions during pregnancy [Recovered/Resolved]
  - High risk pregnancy [Recovered/Resolved]
